FAERS Safety Report 9637440 (Version 1)
Quarter: 2013Q4

REPORT INFORMATION
  Report Type: Spontaneous
  Country: US (occurrence: US)
  Receive Date: 20131022
  Receipt Date: 20131022
  Transmission Date: 20140711
  Serious: Yes (Other)
  Sender: FDA-Public Use
  Company Number: US-BAYER-2013-125662

PATIENT
  Sex: Female

DRUGS (1)
  1. BETASERON [Suspect]
     Indication: MULTIPLE SCLEROSIS
     Dosage: UNK UNK, EVERY THIRD DAY
     Dates: start: 1993

REACTIONS (8)
  - Multiple sclerosis relapse [None]
  - Vision blurred [None]
  - Balance disorder [None]
  - Injection site pain [None]
  - Asthenia [None]
  - Pain in extremity [None]
  - Influenza [None]
  - Weight decreased [None]
